FAERS Safety Report 12275874 (Version 1)
Quarter: 2016Q2

REPORT INFORMATION
  Report Type: Spontaneous
  Country: US (occurrence: US)
  Receive Date: 20160418
  Receipt Date: 20160418
  Transmission Date: 20160815
  Serious: Yes (Hospitalization)
  Sender: FDA-Public Use
  Company Number: US-BEH-2016061237

PATIENT
  Sex: Male
  Weight: 66 kg

DRUGS (20)
  1. LMX [Concomitant]
     Active Substance: LIDOCAINE
  2. SODIUM CHLORIDE. [Concomitant]
     Active Substance: SODIUM CHLORIDE
  3. FLOMAX [Concomitant]
     Active Substance: TAMSULOSIN HYDROCHLORIDE
  4. ECOTRIN [Concomitant]
     Active Substance: ASPIRIN
  5. TOPROL XL [Concomitant]
     Active Substance: METOPROLOL SUCCINATE
  6. EPIPEN [Concomitant]
     Active Substance: EPINEPHRINE
  7. CRESTOR [Concomitant]
     Active Substance: ROSUVASTATIN CALCIUM
  8. ALBUTEROL. [Concomitant]
     Active Substance: ALBUTEROL
  9. NEXIUM [Concomitant]
     Active Substance: ESOMEPRAZOLE MAGNESIUM
  10. DIPHENHYDRAMINE. [Concomitant]
     Active Substance: DIPHENHYDRAMINE
  11. VITAMIN C [Concomitant]
     Active Substance: ASCORBIC ACID
  12. PLAVIX [Concomitant]
     Active Substance: CLOPIDOGREL BISULFATE
  13. PROVENTIL [Concomitant]
     Active Substance: ALBUTEROL
  14. ALTACE [Concomitant]
     Active Substance: RAMIPRIL
  15. LOVAZA [Concomitant]
     Active Substance: OMEGA-3-ACID ETHYL ESTERS
  16. MULTIVITAMIN [Concomitant]
     Active Substance: VITAMINS
  17. NIASPAN [Concomitant]
     Active Substance: NIACIN
  18. ADVAIR HFA [Concomitant]
     Active Substance: FLUTICASONE PROPIONATE\SALMETEROL XINAFOATE
  19. ZEMAIRA [Suspect]
     Active Substance: .ALPHA.1-PROTEINASE INHIBITOR HUMAN
     Indication: ALPHA-1 ANTI-TRYPSIN DEFICIENCY
     Route: 042
     Dates: start: 20050725
  20. METIPRANOLOL. [Concomitant]
     Active Substance: METIPRANOLOL

REACTIONS (1)
  - Myocardial infarction [Unknown]
